FAERS Safety Report 12408517 (Version 3)
Quarter: 2016Q2

REPORT INFORMATION
  Report Type: Spontaneous
  Country: JP (occurrence: JP)
  Receive Date: 20160526
  Receipt Date: 20160614
  Transmission Date: 20160815
  Serious: Yes (Other)
  Sender: FDA-Public Use
  Company Number: JP-PFIZER INC-2016086269

PATIENT
  Age: 72 Year
  Sex: Male
  Weight: 52 kg

DRUGS (11)
  1. ELPLAT [Suspect]
     Active Substance: OXALIPLATIN
     Indication: COLON CANCER
     Dosage: UNK, 1X/DAY
     Route: 041
     Dates: start: 2013, end: 2013
  2. LEVOFOLINATE [Suspect]
     Active Substance: LEVOLEUCOVORIN CALCIUM
     Dosage: UNK, 1X/DAY
     Route: 041
  3. LEVOFOLINATE [Suspect]
     Active Substance: LEVOLEUCOVORIN CALCIUM
     Indication: COLON CANCER
     Dosage: UNK, 1X/DAY
     Route: 041
     Dates: start: 2013, end: 2013
  4. LEVOFOLINATE [Suspect]
     Active Substance: LEVOLEUCOVORIN CALCIUM
     Dosage: UNK, 1X/DAY
     Route: 041
     Dates: start: 201401
  5. 5-FU [Suspect]
     Active Substance: FLUOROURACIL
     Indication: COLON CANCER
     Dosage: UNK, CYCLIC
     Dates: start: 2013, end: 2013
  6. AVASTIN [Suspect]
     Active Substance: BEVACIZUMAB
     Indication: COLON CANCER
     Dosage: UNK, CYCLIC
     Dates: start: 2013, end: 2013
  7. PROPRANOLOL HYDROCHLORIDE. [Concomitant]
     Active Substance: PROPRANOLOL HYDROCHLORIDE
     Dosage: UNK
  8. IRINOTECAN HCL [Suspect]
     Active Substance: IRINOTECAN HYDROCHLORIDE
     Indication: COLON CANCER
     Dosage: UNK, 1X/DAY
     Route: 041
     Dates: start: 201401
  9. IOPAQUE 240 [Concomitant]
     Dosage: UNK
  10. UROGRAFIN [Concomitant]
     Active Substance: DIATRIZOATE MEGLUMINE\DIATRIZOATE SODIUM
     Dosage: UNK
  11. POLIDOCANOL [Concomitant]
     Active Substance: POLIDOCANOL
     Dosage: UNK

REACTIONS (2)
  - Bleeding varicose vein [Recovered/Resolved]
  - Portal hypertension [Recovering/Resolving]
